FAERS Safety Report 4922557-4 (Version None)
Quarter: 2006Q1

REPORT INFORMATION
  Report Type: 
  Country: None (occurrence: None)
  Receive Date: 20060224
  Receipt Date: 20060217
  Transmission Date: 20060701
  Serious: Yes (Disabling)
  Sender: FDA-Public Use
  Company Number: US-GLAXOSMITHKLINE-A0594406A

PATIENT
  Sex: Male

DRUGS (4)
  1. COMBIVIR [Suspect]
     Indication: HIV INFECTION
     Route: 048
  2. RITONAVIR [Concomitant]
  3. INDINIVIR SULFATE [Concomitant]
  4. SAQUINAVIR [Concomitant]

REACTIONS (2)
  - CHOREA [None]
  - MOVEMENT DISORDER [None]
